FAERS Safety Report 8106488-7 (Version None)
Quarter: 2012Q1

REPORT INFORMATION
  Report Type: 
  Country: None (occurrence: None)
  Receive Date: 20120202
  Receipt Date: 20120126
  Transmission Date: 20120608
  Serious: Yes (Other)
  Sender: FDA-Public Use
  Company Number: US-AMGEN-USASP2011062178

PATIENT
  Age: 41 Week
  Sex: Female
  Weight: 3.769 kg

DRUGS (12)
  1. ENBREL [Suspect]
     Dosage: 50 MG, QWK
     Route: 064
     Dates: start: 20091101
  2. ZANTAC [Concomitant]
     Dosage: 150 MG, BID
     Route: 064
  3. PRENATAL                           /00231801/ [Concomitant]
     Dosage: UNK UNK, QD
     Route: 064
     Dates: start: 20101001
  4. PREDNISONE TAB [Concomitant]
     Dosage: 5 MG, QD
     Route: 064
     Dates: start: 20101003, end: 20110201
  5. PREDNISONE TAB [Concomitant]
     Dosage: 2.5 MG, QD
     Route: 064
     Dates: start: 20110201, end: 20110301
  6. FOLIC ACID [Concomitant]
     Dosage: 400 MG, QD
     Route: 064
     Dates: start: 20101001
  7. COLACE [Concomitant]
     Dosage: 100 MG, BID
  8. ENBREL [Suspect]
     Dosage: 50 MG, QWK
     Route: 064
     Dates: start: 20091101
  9. ENBREL [Suspect]
     Dosage: 50 MG, QWK
     Route: 064
     Dates: start: 20091101
  10. LOTEMAX [Concomitant]
     Dosage: UNK UNK, QD
     Route: 064
  11. CALCIUM CITRATE [Concomitant]
     Dosage: 1500 MG, QD
     Route: 064
     Dates: start: 20060101
  12. ASPIRIN [Concomitant]
     Dosage: 81 MG, QD
     Route: 064
     Dates: start: 20110201, end: 20111101

REACTIONS (4)
  - MECONIUM IN AMNIOTIC FLUID [None]
  - CARDIAC MURMUR [None]
  - NEONATAL RESPIRATORY DISTRESS SYNDROME [None]
  - NEONATAL ASPIRATION [None]
